FAERS Safety Report 13629668 (Version 1)
Quarter: 2017Q2

REPORT INFORMATION
  Report Type: Spontaneous
  Country: FR (occurrence: FR)
  Receive Date: 20170608
  Receipt Date: 20170608
  Transmission Date: 20170830
  Serious: Yes (Hospitalization)
  Sender: FDA-Public Use
  Company Number: FR-PFIZER INC-2017244685

PATIENT
  Age: 62 Year
  Sex: Male

DRUGS (15)
  1. CARBOPLATINE HOSPIRA [Suspect]
     Active Substance: CARBOPLATIN
     Indication: LUNG NEOPLASM MALIGNANT
     Dosage: 600 MG, 1X/DAY
     Route: 042
     Dates: start: 20161201, end: 20161201
  2. ONDANSETRON ACCORD [Concomitant]
     Active Substance: ONDANSETRON
     Indication: PREMEDICATION
     Dosage: 1 DF, 1X/DAY
     Route: 042
     Dates: start: 20170119, end: 20170119
  3. ALIMTA [Concomitant]
     Active Substance: PEMETREXED DISODIUM
     Indication: LUNG NEOPLASM MALIGNANT
     Dosage: 1000 MG, 1X/DAY
     Route: 042
     Dates: start: 20161201, end: 20161201
  4. TECENTRIQ [Concomitant]
     Active Substance: ATEZOLIZUMAB
     Dosage: 1200 MG, 1X/DAY
     Dates: start: 20170119, end: 20170119
  5. ALIMTA [Concomitant]
     Active Substance: PEMETREXED DISODIUM
     Dosage: 1000 MG, 1X/DAY
     Route: 042
     Dates: start: 20161223, end: 20161223
  6. ALIMTA [Concomitant]
     Active Substance: PEMETREXED DISODIUM
     Dosage: 1000 MG, 1X/DAY
     Route: 042
     Dates: start: 20170119, end: 20170119
  7. DIAMICRON [Concomitant]
     Active Substance: GLICLAZIDE
     Dosage: UNK
  8. EUCREAS [Concomitant]
     Active Substance: METFORMIN HYDROCHLORIDE\VILDAGLIPTIN
     Dosage: UNK
  9. CARBOPLATINE HOSPIRA [Suspect]
     Active Substance: CARBOPLATIN
     Dosage: 600 MG, 1X/DAY
     Route: 042
     Dates: start: 20161223, end: 20161223
  10. MEDROL [Concomitant]
     Active Substance: METHYLPREDNISOLONE
     Indication: PREMEDICATION
     Dosage: 48 MG, 1X/DAY
     Route: 048
     Dates: start: 20170119, end: 20170119
  11. TECENTRIQ [Concomitant]
     Active Substance: ATEZOLIZUMAB
     Indication: LUNG NEOPLASM MALIGNANT
     Dosage: 1200 MG, 1X/DAY
     Dates: start: 20161201, end: 20161201
  12. CARBOPLATINE HOSPIRA [Suspect]
     Active Substance: CARBOPLATIN
     Dosage: 600 MG, 1X/DAY
     Route: 042
     Dates: start: 20170119, end: 20170119
  13. TECENTRIQ [Concomitant]
     Active Substance: ATEZOLIZUMAB
     Dosage: 1200 MG, 1X/DAY
     Dates: start: 20161223, end: 20161223
  14. METHYLPREDNISOLONE MYLAN /00049604/ [Concomitant]
     Active Substance: METHYLPREDNISOLONE HEMISUCCINATE
     Indication: PREMEDICATION
     Dosage: 40 MG, 1X/DAY
     Route: 042
     Dates: start: 20170119, end: 20170119
  15. AMLOR [Concomitant]
     Active Substance: AMLODIPINE BESYLATE
     Dosage: UNK

REACTIONS (5)
  - Administration related reaction [Recovered/Resolved]
  - Chest discomfort [Recovered/Resolved]
  - Generalised erythema [Recovered/Resolved]
  - Pruritus [Recovered/Resolved]
  - Dysphagia [Recovered/Resolved]

NARRATIVE: CASE EVENT DATE: 20161223
